FAERS Safety Report 7584649-3 (Version None)
Quarter: 2011Q2

REPORT INFORMATION
  Report Type: 
  Country: None (occurrence: None)
  Receive Date: 20110630
  Receipt Date: 20110621
  Transmission Date: 20111010
  Serious: Yes (Other)
  Sender: FDA-Public Use
  Company Number: US-ASTRAZENECA-2011SE36383

PATIENT
  Age: 88 Year
  Sex: Female

DRUGS (2)
  1. UNSPECIFIED [Interacting]
     Route: 065
  2. NEXIUM [Suspect]
     Route: 048

REACTIONS (6)
  - DRUG INTERACTION [None]
  - DIARRHOEA [None]
  - MALAISE [None]
  - HERNIA REPAIR [None]
  - HERNIA [None]
  - HEARING IMPAIRED [None]
